FAERS Safety Report 8803814 (Version 3)
Quarter: 2013Q1

REPORT INFORMATION
  Report Type: Spontaneous
  Country: US (occurrence: US)
  Receive Date: 20120924
  Receipt Date: 20130104
  Transmission Date: 20140127
  Serious: Yes (Hospitalization, Other)
  Sender: FDA-Public Use
  Company Number: US-009507513-1202USA00868

PATIENT
  Sex: 0

DRUGS (3)
  1. FOSAMAX [Suspect]
     Indication: OSTEOPOROSIS
     Dosage: 70 MG, UNK
     Route: 048
     Dates: start: 200205, end: 2010
  2. HORMONES (UNSPECIFIED) [Concomitant]
     Indication: HORMONE THERAPY
     Dosage: UNK
     Dates: start: 1980
  3. SYNTHROID [Concomitant]
     Indication: HYPOTHYROIDISM

REACTIONS (16)
  - Femur fracture [Unknown]
  - Internal fixation of fracture [Unknown]
  - Arthritis [Unknown]
  - Fall [Unknown]
  - Knee arthroplasty [Unknown]
  - Tachycardia [Unknown]
  - Rotator cuff syndrome [Unknown]
  - Scoliosis [Unknown]
  - Back pain [Unknown]
  - Intervertebral disc degeneration [Unknown]
  - Facet joint syndrome [Unknown]
  - Radiculitis [Unknown]
  - Fall [Unknown]
  - Basedow^s disease [Unknown]
  - Tooth fracture [Unknown]
  - Dyspepsia [Unknown]
